FAERS Safety Report 24240643 (Version 1)
Quarter: 2024Q3

REPORT INFORMATION
  Report Type: Spontaneous
  Country: DE (occurrence: DE)
  Receive Date: 20240823
  Receipt Date: 20240823
  Transmission Date: 20241016
  Serious: Yes (Other)
  Sender: AMGEN
  Company Number: DE-002147023-NVSC2024DE168552

PATIENT
  Sex: Female

DRUGS (2)
  1. AIMOVIG [Suspect]
     Active Substance: ERENUMAB-AOOE
     Indication: Migraine
     Dosage: 70 MG
     Route: 065
     Dates: start: 2020
  2. IBUPROFEN [Concomitant]
     Active Substance: IBUPROFEN
     Indication: Product used for unknown indication
     Dosage: UNK (1-2 TIMES A MONTH)
     Route: 065

REACTIONS (3)
  - Tooth fracture [Unknown]
  - Nodule [Not Recovered/Not Resolved]
  - Dupuytren^s contracture [Unknown]
